FAERS Safety Report 12443944 (Version 1)
Quarter: 2016Q2

REPORT INFORMATION
  Report Type: Spontaneous
  Country: US (occurrence: US)
  Receive Date: 20160607
  Receipt Date: 20160607
  Transmission Date: 20160815
  Serious: No
  Sender: FDA-Public Use
  Company Number: US-SA-2016SA052389

PATIENT
  Age: 78 Year
  Sex: Female

DRUGS (2)
  1. TOUJEO [Suspect]
     Active Substance: INSULIN GLARGINE
     Dosage: DOSE-90 UNITS IN THE MORNING AND 50 UNITS AT NIGHT
     Route: 065
     Dates: start: 201512
  2. SOLOSTAR [Concomitant]
     Active Substance: DEVICE
     Dates: start: 201512

REACTIONS (3)
  - Blood glucose decreased [Unknown]
  - Off label use [Unknown]
  - Blood glucose increased [Unknown]
